FAERS Safety Report 4937112-X (Version None)
Quarter: 2006Q1

REPORT INFORMATION
  Report Type: 
  Country: None (occurrence: None)
  Receive Date: 20060302
  Receipt Date: 20060220
  Transmission Date: 20060701
  Serious: Yes (Disabling)
  Sender: FDA-Public Use
  Company Number: BEN-2006-001

PATIENT
  Age: 74 Year
  Sex: Female

DRUGS (7)
  1. DICYCLOMINE [Suspect]
     Dosage: 60 MG
     Dates: start: 20051229, end: 20051230
  2. PRAVASTATIN [Concomitant]
  3. RAMIPRIL [Concomitant]
  4. NITRAZEPAM [Concomitant]
  5. ALDACTIDE (SPIRONOLACTONE, HYDROFLUMETHIAZIDE) [Concomitant]
  6. ASPIRIN [Concomitant]
  7. ATENOLOL [Concomitant]

REACTIONS (2)
  - CONFUSIONAL STATE [None]
  - DEPRESSION [None]
